FAERS Safety Report 6070188-8 (Version None)
Quarter: 2009Q1

REPORT INFORMATION
  Report Type: 
  Country: None (occurrence: None)
  Receive Date: 20090209
  Receipt Date: 20090203
  Transmission Date: 20090719
  Serious: Yes (Hospitalization, Other)
  Sender: FDA-Public Use
  Company Number: FR-ELI_LILLY_AND_COMPANY-FR200902000384

PATIENT
  Sex: Male

DRUGS (7)
  1. GEMZAR [Suspect]
     Indication: BLADDER CANCER
     Dosage: UNK, UNK
     Route: 042
     Dates: start: 20070828
  2. CISPLATIN [Concomitant]
     Indication: BLADDER CANCER
     Route: 042
     Dates: start: 20070828
  3. LYRICA [Concomitant]
     Dosage: 75 MG, UNK
     Route: 048
     Dates: start: 20070830, end: 20071023
  4. EMEND [Concomitant]
     Indication: NAUSEA
     Dosage: 1 D/F, OTHER: DAY OF CHEMOTHERAPY
     Route: 048
  5. SKENAN [Concomitant]
     Route: 048
     Dates: start: 20070823, end: 20071023
  6. IMOVANE [Concomitant]
     Route: 048
     Dates: end: 20071023
  7. HAEMODIALYTICS AND HAEMOFILTRATES [Concomitant]
     Indication: HYPERKALAEMIA
     Dates: start: 20071001

REACTIONS (8)
  - ANAEMIA [None]
  - MYOGLOBINAEMIA [None]
  - NAUSEA [None]
  - NUTRITIONAL CONDITION ABNORMAL [None]
  - RENAL FAILURE ACUTE [None]
  - RHABDOMYOLYSIS [None]
  - THROMBOCYTOPENIA [None]
  - VOMITING [None]
